FAERS Safety Report 9056303 (Version 1)
Quarter: 2013Q1

REPORT INFORMATION
  Report Type: Spontaneous
  Country: US (occurrence: US)
  Receive Date: 20130204
  Receipt Date: 20130204
  Transmission Date: 20140127
  Serious: No
  Sender: FDA-Public Use
  Company Number: US-TEVA-384149USA

PATIENT
  Sex: Male

DRUGS (2)
  1. NUVIGIL [Suspect]
     Indication: INSOMNIA
  2. ADDERALL [Concomitant]

REACTIONS (2)
  - Drug effect decreased [Unknown]
  - Off label use [Unknown]
